FAERS Safety Report 4319859-1 (Version None)
Quarter: 2004Q1

REPORT INFORMATION
  Report Type: 
  Country: None (occurrence: None)
  Receive Date: 20040316
  Receipt Date: 20040304
  Transmission Date: 20041129
  Serious: Yes (Hospitalization)
  Sender: FDA-Public Use
  Company Number: 04P-056-0252963-00

PATIENT
  Age: 58 Year
  Sex: Male
  Weight: 60 kg

DRUGS (12)
  1. NORVIR [Suspect]
     Dosage: 200 MG, PER ORAL
     Route: 048
  2. T-20 [Suspect]
     Dosage: SUBCUTANEOUS
     Route: 058
     Dates: start: 20030416, end: 20030420
  3. SAQUINAVIR [Suspect]
     Dosage: 1600 MG, 1 IN 1 D
  4. PREDNISONE [Concomitant]
  5. AZITHROMYCIN [Concomitant]
  6. FLUCONAZOLE [Concomitant]
  7. TENOFOVIR [Concomitant]
  8. LAMIVUDINE [Concomitant]
  9. KALETRA [Concomitant]
  10. ABACAVIR [Concomitant]
  11. TRIMETHOPRIM [Concomitant]
  12. BACTRIM [Concomitant]

REACTIONS (2)
  - GASTROINTESTINAL TOXICITY [None]
  - VOMITING [None]
